FAERS Safety Report 5642316-7 (Version None)
Quarter: 2008Q1

REPORT INFORMATION
  Report Type: 
  Country: None (occurrence: None)
  Receive Date: 20080225
  Receipt Date: 20080214
  Transmission Date: 20080703
  Serious: Yes (Hospitalization)
  Sender: FDA-Public Use
  Company Number: 2008-00300

PATIENT
  Age: 63 Year
  Sex: Female
  Weight: 72.6 kg

DRUGS (11)
  1. VELCADE [Suspect]
     Indication: MULTIPLE MYELOMA
     Dosage: 1.00 MG/M2, INTRAVENOUS
     Route: 042
     Dates: start: 20070901, end: 20071001
  2. DEXAMETHASONE TAB [Concomitant]
  3. COMBIVENT [Concomitant]
  4. MS CONTIN [Concomitant]
  5. PROCARDIA [Concomitant]
  6. ATENOLOL [Concomitant]
  7. DILANTIN [Concomitant]
  8. ZOCOR [Concomitant]
  9. NORTRIPTYLINE HCL [Concomitant]
  10. CIPRO [Concomitant]
  11. ASPIRIN [Concomitant]

REACTIONS (5)
  - COUGH [None]
  - DYSPNOEA [None]
  - OXYGEN SUPPLEMENTATION [None]
  - RALES [None]
  - WHEEZING [None]
